FAERS Safety Report 9203073 (Version 1)
Quarter: 2013Q1

REPORT INFORMATION
  Report Type: Spontaneous
  Country: US (occurrence: None)
  Receive Date: 20130328
  Receipt Date: 20130328
  Transmission Date: 20140127
  Serious: Yes (Hospitalization)
  Sender: FDA-Public Use
  Company Number: GER/UKI/13/0028706

PATIENT
  Age: 35 Year
  Sex: Female

DRUGS (5)
  1. OMEPRAZOLE (OMEPRAZOLE) [Suspect]
     Indication: PRODUCT USED FOR UNKNOWN INDICATION
     Route: 048
  2. PROPRANOLOL (PROPRANOLOL) [Suspect]
     Indication: PRODUCT USED FOR UNKNOWN INDICATION
     Route: 048
  3. SENNA (SENNA ALEXANDRINA) [Concomitant]
  4. VITAMIN B  (B-KOMPLEX) [Concomitant]
  5. THIAMINE (THIAMINE) [Concomitant]

REACTIONS (9)
  - Confusional state [None]
  - Feeling guilty [None]
  - Thinking abnormal [None]
  - Delusion [None]
  - Hallucination [None]
  - Depressed mood [None]
  - Obsessive-compulsive disorder [None]
  - Gait disturbance [None]
  - Alcohol use [None]
